FAERS Safety Report 14871453 (Version 1)
Quarter: 2018Q2

REPORT INFORMATION
  Report Type: Spontaneous
  Country: CA (occurrence: CA)
  Receive Date: 20180509
  Receipt Date: 20180509
  Transmission Date: 20180711
  Serious: Yes (Other)
  Sender: FDA-Public Use
  Company Number: CA-BAYER-2018-085505

PATIENT
  Age: 26 Year
  Sex: Female
  Weight: 61 kg

DRUGS (2)
  1. MIRENA [Suspect]
     Active Substance: LEVONORGESTREL
     Indication: CONTRACEPTION
     Dosage: 20 MCG/24HR, CONT
     Route: 015
  2. MIRENA [Suspect]
     Active Substance: LEVONORGESTREL
     Indication: CONTRACEPTION

REACTIONS (7)
  - Depressed mood [Unknown]
  - Back pain [Unknown]
  - Abdominal pain lower [None]
  - Nausea [Unknown]
  - Libido decreased [Unknown]
  - Vaginal haemorrhage [Unknown]
  - Dyspareunia [Unknown]
